FAERS Safety Report 8663169 (Version 2)
Quarter: 2013Q4

REPORT INFORMATION
  Report Type: Spontaneous
  Country: SE (occurrence: SE)
  Receive Date: 20120713
  Receipt Date: 20131108
  Transmission Date: 20140711
  Serious: Yes (Death, Hospitalization)
  Sender: FDA-Public Use
  Company Number: SE-009507513-1207SWE000664

PATIENT
  Age: 77 Year
  Sex: Male

DRUGS (5)
  1. ZOCORD [Suspect]
     Dosage: UNK
     Route: 048
     Dates: start: 20090630, end: 200907
  2. OMEPRAZOLE [Suspect]
     Dosage: UNK
     Route: 048
     Dates: start: 200907
  3. TROMBYL [Concomitant]
     Route: 048
  4. NITROMEX [Concomitant]
     Route: 048
  5. SELOKEN ZOC [Concomitant]
     Route: 048

REACTIONS (1)
  - Tubulointerstitial nephritis [Fatal]
